FAERS Safety Report 8434751-9 (Version None)
Quarter: 2012Q2

REPORT INFORMATION
  Report Type: 
  Country: None (occurrence: None)
  Receive Date: 20120614
  Receipt Date: 20120604
  Transmission Date: 20120825
  Serious: Yes (Hospitalization)
  Sender: FDA-Public Use
  Company Number: AT-JNJFOC-20120602751

PATIENT
  Sex: Female
  Weight: 86.7 kg

DRUGS (4)
  1. VALPROATE SODIUM [Concomitant]
     Indication: AFFECTIVE DISORDER
  2. ESOMEPRAZOLE MAGNESIUM [Concomitant]
     Indication: GASTRITIS
     Dates: start: 20111117
  3. PALIPERIDONE [Suspect]
     Indication: SCHIZOPHRENIA
     Route: 030
  4. PROTHIPENDYL [Concomitant]
     Indication: SLEEP DISORDER
     Dates: start: 20111105, end: 20120519

REACTIONS (1)
  - PSYCHOTIC DISORDER [None]
